FAERS Safety Report 16129810 (Version 1)
Quarter: 2019Q1

REPORT INFORMATION
  Report Type: Spontaneous
  Country: US (occurrence: US)
  Receive Date: 20190328
  Receipt Date: 20190328
  Transmission Date: 20190418
  Serious: No
  Sender: FDA-Public Use
  Company Number: US-SEBELA IRELAND LIMITED-2019SEB00022

PATIENT
  Age: 55 Year
  Sex: Female
  Weight: 85.71 kg

DRUGS (5)
  1. UNSPECIFIED THYROID MEDICATION [Concomitant]
     Active Substance: UNSPECIFIED INGREDIENT
  2. NAFTIN [Suspect]
     Active Substance: NAFTIFINE HYDROCHLORIDE
     Indication: FUNGAL SKIN INFECTION
     Dosage: UNK, 2X/DAY
     Route: 061
     Dates: start: 201812
  3. UNSPECIFIED CHOLESTEROL MEDICATION [Concomitant]
     Active Substance: UNSPECIFIED INGREDIENT
  4. UNSPECIFIED HIGH BLOOD PRESSURE MEDICATION [Concomitant]
     Active Substance: UNSPECIFIED INGREDIENT
  5. UNSPECIFIED ASTHMA MEDICATION [Concomitant]
     Dosage: UNK, AS NEEDED

REACTIONS (5)
  - Dry skin [Recovered/Resolved]
  - Drug ineffective [Recovered/Resolved]
  - Skin exfoliation [Recovered/Resolved]
  - Skin disorder [Recovered/Resolved]
  - Rash pruritic [Recovered/Resolved]

NARRATIVE: CASE EVENT DATE: 201812
